FAERS Safety Report 9840391 (Version 1)
Quarter: 2014Q1

REPORT INFORMATION
  Report Type: Spontaneous
  Country: US (occurrence: US)
  Receive Date: 20140124
  Receipt Date: 20140124
  Transmission Date: 20141002
  Serious: Yes (Other)
  Sender: FDA-Public Use
  Company Number: US-SA-2014SA009371

PATIENT
  Sex: 0

DRUGS (2)
  1. LANTUS [Suspect]
     Indication: TYPE 2 DIABETES MELLITUS
     Route: 058
  2. VICTOZA [Suspect]
     Route: 065

REACTIONS (10)
  - Panic attack [Unknown]
  - Anxiety [Recovered/Resolved]
  - Psoriasis [Recovering/Resolving]
  - Weight increased [Recovering/Resolving]
  - Depression [Recovering/Resolving]
  - Feeling abnormal [Recovered/Resolved]
  - Malaise [Recovering/Resolving]
  - Sleep disorder [Recovered/Resolved]
  - Asthenia [Recovered/Resolved]
  - Blood glucose increased [Unknown]
